FAERS Safety Report 6591208-8 (Version None)
Quarter: 2010Q1

REPORT INFORMATION
  Report Type: 
  Country: None (occurrence: None)
  Receive Date: 20100219
  Receipt Date: 20100208
  Transmission Date: 20100710
  Serious: Yes (Other)
  Sender: FDA-Public Use
  Company Number: PHEH2008US07164

PATIENT
  Sex: Male

DRUGS (15)
  1. ZOMETA [Suspect]
     Dosage: MONTHLY
     Dates: start: 20040101, end: 20060101
  2. ZOLADEX [Concomitant]
  3. RADIATION TREATMENT [Concomitant]
  4. INSULIN [Concomitant]
  5. ZOCOR [Concomitant]
  6. ALTACE [Concomitant]
  7. TOPROL-XL [Concomitant]
  8. DIGOXIN [Concomitant]
     Dosage: 2.5 MG, UNK
  9. LANOXIN [Concomitant]
  10. QUINIDINE HCL [Concomitant]
  11. ASPIRIN [Concomitant]
  12. SIMVASTATIN [Concomitant]
     Dosage: UNK
     Route: 048
  13. DITROPAN [Concomitant]
     Dosage: 5 MG, TID
  14. LISINOPRIL [Concomitant]
     Dosage: 20 MG, QD
     Route: 048
     Dates: start: 20080722
  15. FELODIPINE [Concomitant]
     Dosage: 5 MG, QD
     Dates: start: 20080722

REACTIONS (29)
  - ABDOMINAL PAIN [None]
  - ANAEMIA [None]
  - ANHEDONIA [None]
  - ANXIETY [None]
  - BACK PAIN [None]
  - BLADDER CANCER [None]
  - CONSTIPATION [None]
  - DEPRESSION [None]
  - FALL [None]
  - GINGIVAL BLEEDING [None]
  - HAEMATURIA [None]
  - HYDRONEPHROSIS [None]
  - HYPOKALAEMIA [None]
  - INJURY [None]
  - MENTAL DISORDER [None]
  - METASTASES TO BONE [None]
  - NEUROGENIC BLADDER [None]
  - NEUROPATHY PERIPHERAL [None]
  - OSTEONECROSIS [None]
  - PAIN [None]
  - PHYSICAL DISABILITY [None]
  - RENAL FAILURE ACUTE [None]
  - SPINAL OSTEOARTHRITIS [None]
  - TOOTH EXTRACTION [None]
  - TOOTH LOSS [None]
  - URINARY RETENTION [None]
  - URINARY TRACT INFECTION [None]
  - URINE OUTPUT DECREASED [None]
  - WEIGHT DECREASED [None]
